FAERS Safety Report 5191457-X (Version None)
Quarter: 2006Q4

REPORT INFORMATION
  Report Type: 
  Country: None (occurrence: None)
  Receive Date: 20061219
  Receipt Date: 20061205
  Transmission Date: 20070319
  Serious: Yes (Death)
  Sender: FDA-Public Use
  Company Number: MEDI-0005222

PATIENT
  Age: 53 Year

DRUGS (1)
  1. ETHYOL [Suspect]

REACTIONS (1)
  - PNEUMONIA [None]
